FAERS Safety Report 8572631-9 (Version None)
Quarter: 2012Q3

REPORT INFORMATION
  Report Type: 
  Country: None (occurrence: None)
  Receive Date: 20120806
  Receipt Date: 20120802
  Transmission Date: 20120928
  Serious: Yes (Hospitalization)
  Sender: FDA-Public Use
  Company Number: ES-ROCHE-1096215

PATIENT
  Age: 72 Year
  Sex: Female

DRUGS (2)
  1. ACTEMRA [Suspect]
     Route: 042
     Dates: start: 20111213, end: 20111213
  2. ACTEMRA [Suspect]
     Indication: RHEUMATOID ARTHRITIS
     Route: 042

REACTIONS (1)
  - CONFUSIONAL STATE [None]
